FAERS Safety Report 16740427 (Version 1)
Quarter: 2019Q3

REPORT INFORMATION
  Report Type: Spontaneous
  Country: US (occurrence: US)
  Receive Date: 20190709
  Receipt Date: 20190709
  Transmission Date: 20191005
  Serious: No
  Sender: FDA-Public Use
  Company Number: None

PATIENT
  Age: 62 Year
  Sex: Female

DRUGS (1)
  1. REPATHA [Suspect]
     Active Substance: EVOLOCUMAB
     Indication: HYPERLIPIDAEMIA
     Dosage: ?          OTHER FREQUENCY:EVERY28DAYS ;?
     Route: 058
     Dates: start: 20180419

REACTIONS (3)
  - Incorrect dose administered [None]
  - Therapy cessation [None]
  - Device malfunction [None]

NARRATIVE: CASE EVENT DATE: 20190630
